FAERS Safety Report 8137341-0 (Version None)
Quarter: 2012Q1

REPORT INFORMATION
  Report Type: 
  Country: None (occurrence: None)
  Receive Date: 20120210
  Receipt Date: 20120203
  Transmission Date: 20120608
  Serious: Yes (Other)
  Sender: FDA-Public Use
  Company Number: SE-GDP-12412853

PATIENT
  Sex: Female

DRUGS (1)
  1. ORACEA [Suspect]
     Indication: ROSACEA
     Dosage: (40 MG QD ORAL)
     Route: 048
     Dates: start: 20111001, end: 20111002

REACTIONS (3)
  - LIP SWELLING [None]
  - PRURITUS [None]
  - ANGIOEDEMA [None]
